FAERS Safety Report 15068356 (Version 1)
Quarter: 2018Q2

REPORT INFORMATION
  Report Type: Spontaneous
  Country: IT (occurrence: IT)
  Receive Date: 20180626
  Receipt Date: 20180626
  Transmission Date: 20180711
  Serious: Yes (Other)
  Sender: FDA-Public Use
  Company Number: IT-ASTRAZENECA-2018SE79710

PATIENT
  Age: 29226 Day
  Sex: Male

DRUGS (2)
  1. BRILIQUE [Suspect]
     Active Substance: TICAGRELOR
     Dosage: 90X2
     Route: 048
     Dates: start: 20180614
  2. ASA [Suspect]
     Active Substance: ASPIRIN
     Route: 065

REACTIONS (2)
  - Gastrointestinal vascular malformation haemorrhagic [Unknown]
  - Rectal haemorrhage [Unknown]

NARRATIVE: CASE EVENT DATE: 20180614
